FAERS Safety Report 6855637-7 (Version None)
Quarter: 2010Q3

REPORT INFORMATION
  Report Type: 
  Country: None (occurrence: None)
  Receive Date: 20100719
  Receipt Date: 20090609
  Transmission Date: 20110219
  Serious: No
  Sender: FDA-Public Use
  Company Number: US-KINGPHARMUSA00001-K200900702

PATIENT
  Sex: Female
  Weight: 69.841 kg

DRUGS (3)
  1. LEVOXYL [Suspect]
     Indication: HYPOTHYROIDISM
     Dosage: 50 MCG, QD
     Route: 048
     Dates: start: 20050101
  2. ATENOLOL [Concomitant]
     Indication: HYPERTENSION
     Dosage: 10 MG, QHS
     Route: 048
  3. VITAMINS [Concomitant]
     Dosage: UNK
     Route: 048

REACTIONS (8)
  - ASTHENIA [None]
  - DISTURBANCE IN ATTENTION [None]
  - DRUG INEFFECTIVE [None]
  - FATIGUE [None]
  - FEELING ABNORMAL [None]
  - HYPOTHYROIDISM [None]
  - INSOMNIA [None]
  - WEIGHT INCREASED [None]
